FAERS Safety Report 20548377 (Version 2)
Quarter: 2022Q1

REPORT INFORMATION
  Report Type: Spontaneous
  Country: BE (occurrence: BE)
  Receive Date: 20220303
  Receipt Date: 20220317
  Transmission Date: 20220424
  Serious: Yes (Hospitalization)
  Sender: FDA-Public Use
  Company Number: BE-TEVA-2022-BE-2011634

PATIENT
  Age: 72 Year
  Sex: Female

DRUGS (4)
  1. VORICONAZOLE [Interacting]
     Active Substance: VORICONAZOLE
     Indication: Bronchopulmonary aspergillosis
     Dosage: 12 MG/KG DAILY; CLASSIC LOADING DOSE
     Route: 065
  2. VORICONAZOLE [Interacting]
     Active Substance: VORICONAZOLE
     Dosage: 8 MG/KG DAILY; MAINTENANCE DOSE
     Route: 065
  3. FLUCLOXACILLIN [Interacting]
     Active Substance: FLUCLOXACILLIN
     Indication: Staphylococcal infection
     Dosage: 6 TIMES 1G; HIGH DOSE
     Route: 065
  4. FLUCLOXACILLIN [Interacting]
     Active Substance: FLUCLOXACILLIN
     Dosage: 6 TIMES 2G; INCREASED DOSE
     Route: 065

REACTIONS (2)
  - Drug level decreased [Recovering/Resolving]
  - Drug interaction [Unknown]
